FAERS Safety Report 5027882-7 (Version None)
Quarter: 2006Q2

REPORT INFORMATION
  Report Type: 
  Country: None (occurrence: None)
  Receive Date: 20060616
  Receipt Date: 20060613
  Transmission Date: 20061013
  Serious: Yes (Other)
  Sender: FDA-Public Use
  Company Number: GB-ROCHE-451811

PATIENT
  Age: 35 Year
  Sex: Female
  Weight: 84.8 kg

DRUGS (4)
  1. XENICAL [Suspect]
     Indication: OBESITY
     Route: 048
     Dates: start: 20060503, end: 20060603
  2. XENICAL [Suspect]
     Route: 048
     Dates: start: 20060613
  3. UNSPECIFIED MEDICATION [Concomitant]
  4. RANITIDINE [Concomitant]

REACTIONS (4)
  - ABDOMINAL PAIN UPPER [None]
  - DIARRHOEA [None]
  - LOSS OF CONSCIOUSNESS [None]
  - NAUSEA [None]
